FAERS Safety Report 11134738 (Version 2)
Quarter: 2015Q3

REPORT INFORMATION
  Report Type: Report from Study
  Country: US (occurrence: US)
  Receive Date: 20150525
  Receipt Date: 20150713
  Transmission Date: 20151125
  Serious: Yes (Other)
  Sender: FDA-Public Use
  Company Number: US-BIOGENIDEC-2015BI069367

PATIENT
  Age: 44 Year
  Sex: Male

DRUGS (3)
  1. LUNESTA [Concomitant]
     Active Substance: ESZOPICLONE
  2. DIAZEPAM. [Concomitant]
     Active Substance: DIAZEPAM
  3. AVONEX [Suspect]
     Active Substance: INTERFERON BETA-1A
     Indication: RELAPSING-REMITTING MULTIPLE SCLEROSIS
     Route: 030
     Dates: start: 2012

REACTIONS (14)
  - Overdose [Recovered/Resolved]
  - Visual impairment [Unknown]
  - Depression [Unknown]
  - Emotional distress [Unknown]
  - Fibromyalgia [Unknown]
  - Pain [Unknown]
  - Suicide attempt [Recovered/Resolved]
  - Osteoarthritis [Unknown]
  - Injection site haemorrhage [Recovered/Resolved]
  - Injection site extravasation [Recovered/Resolved]
  - Sensory loss [Recovered/Resolved]
  - Accidental underdose [Recovered/Resolved]
  - Psoriasis [Unknown]
  - Mental disorder [Recovered/Resolved]

NARRATIVE: CASE EVENT DATE: 201504
